FAERS Safety Report 4462566-5 (Version None)
Quarter: 2004Q3

REPORT INFORMATION
  Report Type: 
  Country: None (occurrence: None)
  Receive Date: 20040924
  Receipt Date: 20040908
  Transmission Date: 20050211
  Serious: Yes (Other)
  Sender: FDA-Public Use
  Company Number: DE-2004-031469

PATIENT
  Sex: Male

DRUGS (1)
  1. BETASERON [Suspect]
     Dosage: EVERY 2D, SUBCUTANEOUS
     Route: 058
     Dates: start: 20040801

REACTIONS (1)
  - LOSS OF CONSCIOUSNESS [None]
